FAERS Safety Report 17892470 (Version 3)
Quarter: 2025Q4

REPORT INFORMATION
  Report Type: Spontaneous
  Country: EU (occurrence: EU)
  Receive Date: 20200613
  Receipt Date: 20251023
  Transmission Date: 20260117
  Serious: Yes (Other)
  Sender: AUROBINDO
  Company Number: EU-MEDICE ARZNEIMITTEL-ATTENTINSPO200522

PATIENT
  Age: 52 Year
  Sex: Female

DRUGS (2)
  1. CITALOPRAM [Suspect]
     Active Substance: CITALOPRAM
     Indication: Product used for unknown indication
     Dosage: UNK
     Route: 065
  2. DEXTROAMPHETAMINE SULFATE [Suspect]
     Active Substance: DEXTROAMPHETAMINE SULFATE
     Indication: Attention deficit hyperactivity disorder
     Dosage: 22.5 MILLIGRAM, ONCE A DAY
     Route: 048
     Dates: start: 201906, end: 202005

REACTIONS (6)
  - Visual impairment [Unknown]
  - Retinal toxicity [Unknown]
  - Night blindness [Unknown]
  - Colour blindness acquired [Unknown]
  - Product use issue [Recovered/Resolved]
  - Off label use [Recovered/Resolved]

NARRATIVE: CASE EVENT DATE: 20190601
